FAERS Safety Report 4791464-2 (Version None)
Quarter: 2005Q4

REPORT INFORMATION
  Report Type: 
  Country: None (occurrence: None)
  Receive Date: 20051007
  Receipt Date: 20040813
  Transmission Date: 20060501
  Serious: No
  Sender: FDA-Public Use
  Company Number: US-BRISTOL-MYERS SQUIBB COMPANY-12673067

PATIENT
  Age: 62 Year
  Weight: 123 kg

DRUGS (13)
  1. AVAPRO [Suspect]
     Indication: HYPERTENSION
     Dosage: DURATION=2-3 YEARS
     Route: 048
  2. ALBUTEROL [Concomitant]
  3. ATROVENT [Concomitant]
  4. ADVAIR DISKUS 100/50 [Concomitant]
  5. SINGULAIR [Concomitant]
  6. PROTONIX [Concomitant]
  7. LEVOXYL [Concomitant]
  8. LASIX [Concomitant]
  9. MIACALCIN [Concomitant]
  10. ZYRTEC [Concomitant]
  11. LIPITOR [Concomitant]
  12. EFFEXOR [Concomitant]
  13. VITAMINS [Concomitant]

REACTIONS (2)
  - DYSGEUSIA [None]
  - GLOSSODYNIA [None]
